FAERS Safety Report 9215455 (Version 3)
Quarter: 2013Q2

REPORT INFORMATION
  Report Type: Spontaneous
  Country: JP (occurrence: JP)
  Receive Date: 20130405
  Receipt Date: 20130417
  Transmission Date: 20140414
  Serious: Yes (Death, Life-Threatening, Hospitalization)
  Sender: FDA-Public Use
  Company Number: JP-009507513-1304JPN001639

PATIENT
  Age: 58 Year
  Sex: Female
  Weight: 54 kg

DRUGS (5)
  1. PEGINTRON [Suspect]
     Indication: CHRONIC HEPATITIS C
     Dosage: 60 MCG/WEEK
     Route: 058
     Dates: start: 20130122, end: 20130304
  2. REBETOL [Suspect]
     Indication: CHRONIC HEPATITIS C
     Dosage: 400 MG, DAY
     Route: 048
     Dates: start: 20130122, end: 20130309
  3. TELAVIC [Suspect]
     Indication: CHRONIC HEPATITIS C
     Dosage: 1500 MG, QD
     Route: 048
     Dates: start: 20130122, end: 20130309
  4. SINGULAIR [Concomitant]
     Indication: ASTHMA
     Dosage: 10 MG, BEFORE SLEEP
     Route: 048
     Dates: start: 20130225, end: 20130308
  5. PREDONINE [Concomitant]
     Indication: ASTHMA
     Dosage: 20 MG,AFTER THE BREAKFAST
     Route: 048
     Dates: start: 20130225, end: 20130301

REACTIONS (2)
  - Septic shock [Fatal]
  - Necrotising fasciitis [Not Recovered/Not Resolved]
